FAERS Safety Report 4274728-0 (Version None)
Quarter: 2004Q1

REPORT INFORMATION
  Report Type: 
  Country: None (occurrence: None)
  Receive Date: 20040120
  Receipt Date: 20040120
  Transmission Date: 20041129
  Serious: Yes (Hospitalization)
  Sender: FDA-Public Use
  Company Number: None

PATIENT
  Age: 64 Year
  Sex: Female
  Weight: 78 kg

DRUGS (1)
  1. KETOROLAC [Suspect]
     Dosage: 15 MG X 2 DOSES IV
     Route: 042
     Dates: start: 20021224, end: 20021224

REACTIONS (3)
  - HAEMORRHAGE [None]
  - PROCEDURAL HYPOTENSION [None]
  - RENAL FAILURE ACUTE [None]
